FAERS Safety Report 9804229 (Version 1)
Quarter: 2014Q1

REPORT INFORMATION
  Report Type: Spontaneous
  Country: US (occurrence: None)
  Receive Date: 20140106
  Receipt Date: 20140106
  Transmission Date: 20141002
  Serious: Yes (Other)
  Sender: FDA-Public Use
  Company Number: 2013-00167

PATIENT
  Sex: Male

DRUGS (2)
  1. ZICAM [Suspect]
     Indication: NASOPHARYNGITIS
  2. ZICAM [Suspect]
     Indication: INFLUENZA

REACTIONS (1)
  - Anosmia [None]
